FAERS Safety Report 15693547 (Version 1)
Quarter: 2018Q4

REPORT INFORMATION
  Report Type: Spontaneous
  Country: US (occurrence: US)
  Receive Date: 20181206
  Receipt Date: 20181206
  Transmission Date: 20190205
  Serious: Yes (Other)
  Sender: FDA-Public Use
  Company Number: US-PFIZER INC-2018436383

PATIENT
  Age: 63 Year
  Sex: Female

DRUGS (1)
  1. DILANTIN [Suspect]
     Active Substance: PHENYTOIN
     Dosage: 300 MG, 2X/DAY
     Dates: start: 20181106

REACTIONS (3)
  - Prescribed overdose [Unknown]
  - Seizure [Unknown]
  - Insomnia [Unknown]
